FAERS Safety Report 5416558-X (Version None)
Quarter: 2007Q3

REPORT INFORMATION
  Report Type: 
  Country: None (occurrence: None)
  Receive Date: 20070814
  Receipt Date: 20070814
  Transmission Date: 20080115
  Serious: Yes (Other)
  Sender: FDA-Public Use
  Company Number: None

PATIENT
  Age: 69 Year
  Sex: Female
  Weight: 72.5755 kg

DRUGS (1)
  1. LYRICA [Suspect]
     Indication: NEUROPATHY
     Dosage: 1 2 DAILY
     Dates: start: 20050820, end: 20070811

REACTIONS (3)
  - ABNORMAL SENSATION IN EYE [None]
  - BACK PAIN [None]
  - VISION BLURRED [None]
